FAERS Safety Report 13517619 (Version 2)
Quarter: 2017Q2

REPORT INFORMATION
  Report Type: Spontaneous
  Country: US (occurrence: US)
  Receive Date: 20170505
  Receipt Date: 20170523
  Transmission Date: 20170830
  Serious: Yes (Other)
  Sender: FDA-Public Use
  Company Number: US-PFIZER INC-2017193820

PATIENT
  Age: 6 Year
  Sex: Male

DRUGS (9)
  1. EUCRISA [Suspect]
     Active Substance: CRISABOROLE
     Dosage: UNK, AS NEEDED (APPLY TO AFFECTED AREAS BID PRN)
     Route: 061
     Dates: start: 20170420, end: 20170426
  2. ZYRTEC [Concomitant]
     Active Substance: CETIRIZINE HYDROCHLORIDE
     Indication: RHINITIS ALLERGIC
     Dosage: UNK, 2X/DAY  (2 TAP BID)
  3. ZYRTEC [Concomitant]
     Active Substance: CETIRIZINE HYDROCHLORIDE
     Indication: DERMATITIS ATOPIC
     Dosage: UNK UNK, DAILY (1 TAP  EVERY DAY BEFORE NOON)
  4. BENADRYL [Concomitant]
     Active Substance: DIPHENHYDRAMINE HYDROCHLORIDE
     Indication: RHINITIS ALLERGIC
  5. XYZAL [Concomitant]
     Active Substance: LEVOCETIRIZINE DIHYDROCHLORIDE
     Indication: DERMATITIS ATOPIC
     Dosage: UNK, 1X/DAY (1 TAP QHS)
     Dates: start: 2014
  6. XYZAL [Concomitant]
     Active Substance: LEVOCETIRIZINE DIHYDROCHLORIDE
     Indication: RHINITIS ALLERGIC
  7. BENADRYL [Concomitant]
     Active Substance: DIPHENHYDRAMINE HYDROCHLORIDE
     Indication: DERMATITIS ATOPIC
     Dosage: UNK, AS NEEDED (Q 4 PRN)
  8. EUCRISA [Suspect]
     Active Substance: CRISABOROLE
     Indication: DERMATITIS ATOPIC
     Dosage: UNK UNK, AS NEEDED TWICE A DAY
     Route: 061
     Dates: end: 201704
  9. BENADRYL [Concomitant]
     Active Substance: DIPHENHYDRAMINE HYDROCHLORIDE
     Indication: FOOD ALLERGY

REACTIONS (6)
  - Erythema [Recovering/Resolving]
  - Vomiting [Unknown]
  - Cough [Unknown]
  - Respiration abnormal [Unknown]
  - Pruritus [Recovering/Resolving]
  - Anaphylactic reaction [Recovering/Resolving]

NARRATIVE: CASE EVENT DATE: 201704
